FAERS Safety Report 7449551-6 (Version None)
Quarter: 2011Q2

REPORT INFORMATION
  Report Type: 
  Country: None (occurrence: None)
  Receive Date: 20110502
  Receipt Date: 20110412
  Transmission Date: 20111010
  Serious: Yes (Other)
  Sender: FDA-Public Use
  Company Number: AT-BAYER-2011-019983

PATIENT
  Age: 29 Year
  Sex: Female

DRUGS (1)
  1. MIRENA [Suspect]
     Indication: PRODUCT USED FOR UNKNOWN INDICATION
     Dosage: 20 MCG/24HR, UNK
     Route: 015
     Dates: start: 20100810, end: 20110311

REACTIONS (4)
  - VAGINAL HAEMORRHAGE [None]
  - DEVICE DISLOCATION [None]
  - MENOMETRORRHAGIA [None]
  - ABDOMINAL PAIN LOWER [None]
